FAERS Safety Report 13628925 (Version 1)
Quarter: 2017Q2

REPORT INFORMATION
  Report Type: Spontaneous
  Country: DE (occurrence: DE)
  Receive Date: 20170607
  Receipt Date: 20170607
  Transmission Date: 20170830
  Serious: Yes (Hospitalization)
  Sender: FDA-Public Use
  Company Number: DE-MEDA-2017050099

PATIENT
  Age: 91 Year
  Sex: Female

DRUGS (5)
  1. AZARGA [Concomitant]
     Active Substance: BRINZOLAMIDE\TIMOLOL MALEATE
     Indication: GLAUCOMA
  2. TORASEMIDE 5 MG [Suspect]
     Active Substance: TORSEMIDE
     Indication: CARDIAC FAILURE
     Route: 048
     Dates: start: 201703
  3. TORASEMIDE 5 MG [Suspect]
     Active Substance: TORSEMIDE
     Indication: CARDIAC FAILURE
     Route: 048
     Dates: start: 201508
  4. CARBIMAZOL [Concomitant]
     Active Substance: CARBIMAZOLE
     Indication: HYPERTHYROIDISM
  5. VIGANTOLETTEN [Concomitant]
     Active Substance: CHOLECALCIFEROL
     Indication: VITAMIN D DEFICIENCY

REACTIONS (7)
  - Hallucination [Unknown]
  - Language disorder [Unknown]
  - Muscle twitching [Unknown]
  - Persecutory delusion [Unknown]
  - Nightmare [Unknown]
  - Tic [Unknown]
  - Tremor [Unknown]

NARRATIVE: CASE EVENT DATE: 201508
